FAERS Safety Report 8293839-6 (Version None)
Quarter: 2012Q2

REPORT INFORMATION
  Report Type: 
  Country: None (occurrence: None)
  Receive Date: 20120413
  Receipt Date: 20120328
  Transmission Date: 20120825
  Serious: Yes (Hospitalization)
  Sender: FDA-Public Use
  Company Number: CIO12005712

PATIENT
  Sex: Male

DRUGS (1)
  1. NYQUIL ADULT, VERSION/FLAVOR UNKNOWN (ETHANOL 10-25%,DEXTROMETHORPHAN [Suspect]
     Indication: NASOPHARYNGITIS
     Dosage: ORAL
     Route: 048
     Dates: start: 20120319, end: 20120320

REACTIONS (10)
  - HALLUCINATION [None]
  - ABNORMAL BEHAVIOUR [None]
  - OVERDOSE [None]
  - FALL [None]
  - MUSCULOSKELETAL STIFFNESS [None]
  - LOSS OF CONSCIOUSNESS [None]
  - FACE INJURY [None]
  - TOOTH LOSS [None]
  - CONVULSION [None]
  - MUSCLE TWITCHING [None]
